FAERS Safety Report 14714594 (Version 2)
Quarter: 2018Q2

REPORT INFORMATION
  Report Type: Spontaneous
  Country: US (occurrence: US)
  Receive Date: 20180404
  Receipt Date: 20180613
  Transmission Date: 20180711
  Serious: No
  Sender: FDA-Public Use
  Company Number: US-PFIZER INC-2018135940

PATIENT
  Sex: Male

DRUGS (1)
  1. CHANTIX [Suspect]
     Active Substance: VARENICLINE TARTRATE
     Indication: SMOKING CESSATION THERAPY
     Dosage: UNK, 2X/DAY (ONCE IN THE MORNING AND THEN WITH DINNER)

REACTIONS (4)
  - Sleep disorder [Recovered/Resolved]
  - Nightmare [Recovered/Resolved]
  - Nausea [Recovering/Resolving]
  - Insomnia [Recovered/Resolved]
